FAERS Safety Report 14157260 (Version 1)
Quarter: 2017Q4

REPORT INFORMATION
  Report Type: Spontaneous
  Country: FR (occurrence: FR)
  Receive Date: 20171103
  Receipt Date: 20171103
  Transmission Date: 20180321
  Serious: Yes (Hospitalization)
  Sender: FDA-Public Use
  Company Number: FR-PFIZER INC-2017465978

PATIENT
  Age: 65 Year
  Sex: Female

DRUGS (13)
  1. EXFORGE [Concomitant]
     Active Substance: AMLODIPINE BESYLATE\VALSARTAN
  2. KARDEGIC [Concomitant]
     Active Substance: ASPIRIN DL-LYSINE
  3. KAYEXALATE [Concomitant]
     Active Substance: SODIUM POLYSTYRENE SULFONATE
  4. ALPRESS [Suspect]
     Active Substance: PRAZOSIN
     Indication: HYPERTENSION
     Dosage: 5 MG, DAILY
     Route: 048
     Dates: start: 20170705, end: 20170812
  5. ALLOPURINOL. [Suspect]
     Active Substance: ALLOPURINOL
     Indication: RENAL LITHIASIS PROPHYLAXIS
     Dosage: 100 MG, DAILY
     Route: 048
     Dates: start: 20170705, end: 20170812
  6. ARANESP [Concomitant]
     Active Substance: DARBEPOETIN ALFA
  7. BISOCE [Concomitant]
     Active Substance: BISOPROLOL
  8. TOUJEO [Concomitant]
     Active Substance: INSULIN GLARGINE
  9. JANUVIA [Concomitant]
     Active Substance: SITAGLIPTIN PHOSPHATE
  10. INEXIUM /01479302/ [Concomitant]
     Active Substance: ESOMEPRAZOLE MAGNESIUM
  11. TARDYFERON [Concomitant]
     Active Substance: FERROUS SULFATE
  12. NOVORAPID [Concomitant]
     Active Substance: INSULIN ASPART
  13. ATORVASTATINE /01326101/ [Concomitant]
     Active Substance: ATORVASTATIN

REACTIONS (1)
  - Drug reaction with eosinophilia and systemic symptoms [Recovering/Resolving]

NARRATIVE: CASE EVENT DATE: 201708
